FAERS Safety Report 13157514 (Version 1)
Quarter: 2017Q1

REPORT INFORMATION
  Report Type: Spontaneous
  Country: US (occurrence: US)
  Receive Date: 20170127
  Receipt Date: 20170127
  Transmission Date: 20170428
  Serious: No
  Sender: FDA-Public Use
  Company Number: US-BAYER-2017-015012

PATIENT
  Age: 78 Year
  Sex: Male
  Weight: 66 kg

DRUGS (3)
  1. MIRALAX [Suspect]
     Active Substance: POLYETHYLENE GLYCOL 3350
     Indication: CONSTIPATION
  2. MIRALAX [Suspect]
     Active Substance: POLYETHYLENE GLYCOL 3350
     Indication: GASTROINTESTINAL DISORDER
     Dosage: 1 DF, CONSUMER TOOK THE PRODUCT SOMETIMES TWICE A DAY, DOCTOR RECOMMENDED TO USE IT DAILY
     Route: 048
  3. PRESCRIPTION MEDICATION [Concomitant]
     Dosage: UNK

REACTIONS (1)
  - Product use issue [Unknown]
